FAERS Safety Report 8699546 (Version 4)
Quarter: 2012Q4

REPORT INFORMATION
  Report Type: 
  Country: US (occurrence: US)
  Receive Date: 20120802
  Receipt Date: 20120919
  Transmission Date: 20130627
  Serious: Yes (Other)
  Sender: FDA-Public Use
  Company Number: US-ASTRAZENECA-2012SE54102

PATIENT
  Age: 50 Year
  Sex: Female
  Weight: 78 kg

DRUGS (6)
  1. RHINOCORT AQUA [Suspect]
     Indication: RHINITIS ALLERGIC
     Dosage: 2 SPRAY EACH NOSTRIL AS REQUIRED
     Route: 045
     Dates: start: 2007
  2. SEROQUEL [Suspect]
     Indication: BIPOLAR DISORDER
     Route: 048
  3. SEROQUEL [Suspect]
     Indication: DEPRESSION
     Route: 048
  4. SEROQUEL [Suspect]
     Indication: SLEEP DISORDER
     Route: 048
  5. CRESTOR [Suspect]
     Indication: BLOOD CHOLESTEROL INCREASED
     Route: 048
  6. ZOLADEX [Suspect]
     Indication: BREAST CANCER
     Route: 058

REACTIONS (4)
  - Breast cancer stage II [Unknown]
  - Multiple allergies [Unknown]
  - Nasal congestion [Unknown]
  - Off label use [Unknown]
